FAERS Safety Report 5802342-1 (Version None)
Quarter: 2008Q3

REPORT INFORMATION
  Report Type: 
  Country: None (occurrence: None)
  Receive Date: 20080707
  Receipt Date: 20080701
  Transmission Date: 20090109
  Serious: Yes (Other)
  Sender: FDA-Public Use
  Company Number: US-BOEHRINGER INGELHEIM GMBH, GERMANY-2008-BP-09964BP

PATIENT
  Sex: Male

DRUGS (6)
  1. SPIRIVA [Suspect]
     Indication: CHRONIC OBSTRUCTIVE PULMONARY DISEASE
     Route: 055
     Dates: start: 20060101
  2. ALBUTEROL [Concomitant]
  3. NEXIUM [Concomitant]
  4. COZAAR [Concomitant]
  5. LIPITOR [Concomitant]
  6. FINASTERIDE [Concomitant]

REACTIONS (2)
  - CARDIAC DISORDER [None]
  - WHEEZING [None]
